FAERS Safety Report 4303442-8 (Version None)
Quarter: 2004Q1

REPORT INFORMATION
  Report Type: 
  Country: None (occurrence: None)
  Receive Date: 20040223
  Receipt Date: 20040213
  Transmission Date: 20041129
  Serious: Yes (Other)
  Sender: FDA-Public Use
  Company Number: 2004-02-0862

PATIENT
  Age: 68 Year
  Sex: Male

DRUGS (2)
  1. VIRAFERONPEG (PEG INTERFERON ALFA-2B RECOMBINANT) MULTIDOSE PEN (LIKE [Suspect]
     Indication: HEPATITIS C
     Dates: start: 20030601
  2. REBETOL [Suspect]
     Indication: HEPATITIS C
     Dosage: ORAL
     Route: 048
     Dates: start: 20030601

REACTIONS (1)
  - NEURILEMMOMA BENIGN [None]
